FAERS Safety Report 4724791-5 (Version None)
Quarter: 2005Q3

REPORT INFORMATION
  Report Type: 
  Country: None (occurrence: None)
  Receive Date: 20050726
  Receipt Date: 20050713
  Transmission Date: 20060218
  Serious: Yes (Hospitalization)
  Sender: FDA-Public Use
  Company Number: 200511963EU

PATIENT
  Age: 81 Year
  Sex: Male

DRUGS (4)
  1. FLUDEX [Suspect]
     Indication: ESSENTIAL HYPERTENSION
     Route: 048
     Dates: end: 20050430
  2. PLAVIX [Concomitant]
  3. ZOCOR [Concomitant]
  4. DEROXAT [Concomitant]

REACTIONS (4)
  - CHEST DISCOMFORT [None]
  - HOT FLUSH [None]
  - HYPOKALAEMIA [None]
  - VENTRICULAR TACHYCARDIA [None]
